FAERS Safety Report 9258511 (Version 1)
Quarter: 2013Q2

REPORT INFORMATION
  Report Type: Spontaneous
  Country: US (occurrence: US)
  Receive Date: 20130426
  Receipt Date: 20130426
  Transmission Date: 20140414
  Serious: No
  Sender: FDA-Public Use
  Company Number: US-PFIZER INC-2013132055

PATIENT
  Age: 27 Year
  Sex: Male
  Weight: 86.17 kg

DRUGS (2)
  1. CHANTIX [Suspect]
     Indication: SMOKING CESSATION THERAPY
     Dosage: 0.5 MG, 1X/DAY
     Route: 048
     Dates: start: 201111, end: 201111
  2. CHANTIX [Suspect]
     Dosage: UNK
     Route: 048
     Dates: start: 201111

REACTIONS (3)
  - Abnormal dreams [Unknown]
  - Abnormal dreams [Unknown]
  - Stress [Unknown]
